FAERS Safety Report 10271973 (Version 2)
Quarter: 2014Q3

REPORT INFORMATION
  Report Type: Report from Study
  Country: MX (occurrence: MX)
  Receive Date: 20140702
  Receipt Date: 20140702
  Transmission Date: 20150326
  Serious: Yes (Hospitalization)
  Sender: FDA-Public Use
  Company Number: PHHY2012MX130042

PATIENT
  Sex: Female

DRUGS (6)
  1. PRAVASTATIN [Concomitant]
     Active Substance: PRAVASTATIN\PRAVASTATIN SODIUM
     Indication: DYSLIPIDAEMIA
     Dosage: 20 MG, BID
     Route: 048
     Dates: start: 2006
  2. BEZAFIBRATE [Concomitant]
     Active Substance: BEZAFIBRATE
     Indication: DYSLIPIDAEMIA
     Dosage: 20 MG, BID
     Route: 048
     Dates: start: 2006
  3. SOM230 [Suspect]
     Active Substance: PASIREOTIDE
     Indication: OFF LABEL USE
  4. NIFEDIPINE. [Concomitant]
     Active Substance: NIFEDIPINE
     Indication: HYPERTENSION
     Dosage: 30 MG, BID
     Route: 048
     Dates: start: 2000
  5. SOM230 [Suspect]
     Active Substance: PASIREOTIDE
     Indication: CUSHING^S SYNDROME
     Dosage: 0.6 MG, BID
     Route: 058
     Dates: start: 20121015
  6. NPH INSULIN [Concomitant]
     Active Substance: INSULIN BEEF
     Indication: DIABETES MELLITUS
     Dosage: 30 IU, IN THE MORNIG
     Dates: start: 2004

REACTIONS (2)
  - Sinusitis [Recovered/Resolved]
  - Hyperglycaemia [Unknown]

NARRATIVE: CASE EVENT DATE: 20121127
